FAERS Safety Report 19500202 (Version 3)
Quarter: 2022Q1

REPORT INFORMATION
  Report Type: Spontaneous
  Country: US (occurrence: US)
  Receive Date: 20210707
  Receipt Date: 20220301
  Transmission Date: 20220423
  Serious: Yes (Hospitalization, Other)
  Sender: FDA-Public Use
  Company Number: US-GILEAD-2021-0539454

PATIENT
  Age: 61 Year
  Sex: Female

DRUGS (54)
  1. ATRIPLA [Suspect]
     Active Substance: EFAVIRENZ\EMTRICITABINE\TENOFOVIR DISOPROXIL FUMARATE
     Indication: HIV infection
     Dosage: UNK
     Route: 048
     Dates: start: 2009
  2. ATRIPLA [Suspect]
     Active Substance: EFAVIRENZ\EMTRICITABINE\TENOFOVIR DISOPROXIL FUMARATE
     Dosage: UNK
     Route: 048
     Dates: start: 2006, end: 201905
  3. EPIVIR [Concomitant]
     Active Substance: LAMIVUDINE
  4. TIVICAY [Concomitant]
     Active Substance: DOLUTEGRAVIR SODIUM
  5. DULOXETINE [Concomitant]
     Active Substance: DULOXETINE
  6. MAPAP [Concomitant]
     Active Substance: ACETAMINOPHEN
  7. ACETAMINOPHEN [Concomitant]
     Active Substance: ACETAMINOPHEN
  8. NAPROXEN [Concomitant]
     Active Substance: NAPROXEN
  9. CYCLOBENZAPRINE [Concomitant]
     Active Substance: CYCLOBENZAPRINE
  10. ASPIRIN [Concomitant]
     Active Substance: ASPIRIN
  11. ROSUVASTATIN [Concomitant]
     Active Substance: ROSUVASTATIN
  12. DOXAZOSIN [Concomitant]
     Active Substance: DOXAZOSIN MESYLATE
  13. PROAIR HFA [Concomitant]
     Active Substance: ALBUTEROL SULFATE
  14. ALBUTEROL [Concomitant]
     Active Substance: ALBUTEROL
  15. MONTELUKAST [Concomitant]
     Active Substance: MONTELUKAST SODIUM
  16. CALCIUM CARBONATE\CHOLECALCIFEROL [Concomitant]
     Active Substance: CALCIUM CARBONATE\CHOLECALCIFEROL
  17. SPIRIVA [Concomitant]
     Active Substance: TIOTROPIUM BROMIDE MONOHYDRATE
  18. METFORMIN [Concomitant]
     Active Substance: METFORMIN HYDROCHLORIDE
  19. CETIRIZINE HCL [Concomitant]
     Active Substance: CETIRIZINE HYDROCHLORIDE
  20. GABAPENTIN [Concomitant]
     Active Substance: GABAPENTIN
  21. CHLORTHALIDONE [Concomitant]
     Active Substance: CHLORTHALIDONE
  22. AMLODIPINE BESYLATE [Concomitant]
     Active Substance: AMLODIPINE BESYLATE
  23. OMEPRAZOLE [Concomitant]
     Active Substance: OMEPRAZOLE
  24. LORAZEPAM [Concomitant]
     Active Substance: LORAZEPAM
  25. NYSTATIN [Concomitant]
     Active Substance: NYSTATIN
  26. FERROUS SULFATE [Concomitant]
     Active Substance: FERROUS SULFATE
  27. VENTOLIN HFA [Concomitant]
     Active Substance: ALBUTEROL SULFATE
  28. PREDNISONE [Concomitant]
     Active Substance: PREDNISONE
  29. ATORVASTATIN [Concomitant]
     Active Substance: ATORVASTATIN
  30. IPRATROPIUM [Concomitant]
     Active Substance: IPRATROPIUM
  31. EPINEPHRINE [Concomitant]
     Active Substance: EPINEPHRINE
  32. LISINOPRIL [Concomitant]
     Active Substance: LISINOPRIL
  33. INCRUSE ELLIPTA [Concomitant]
     Active Substance: UMECLIDINIUM BROMIDE
  34. DOVATO [Concomitant]
     Active Substance: DOLUTEGRAVIR SODIUM\LAMIVUDINE
  35. TORSEMIDE [Concomitant]
     Active Substance: TORSEMIDE
  36. FLOVENT HFA [Concomitant]
     Active Substance: FLUTICASONE PROPIONATE
  37. CEFPODOXIME [Concomitant]
     Active Substance: CEFPODOXIME
  38. MAGNESIUM OXIDE [Concomitant]
     Active Substance: MAGNESIUM OXIDE
  39. SERTRALINE HYDROCHLORIDE [Concomitant]
     Active Substance: SERTRALINE HYDROCHLORIDE
  40. GLIPIZIDE [Concomitant]
     Active Substance: GLIPIZIDE
  41. AZITHROMYCIN [Concomitant]
     Active Substance: AZITHROMYCIN
  42. TRULICITY [Concomitant]
     Active Substance: DULAGLUTIDE
  43. OXYCODONE [Concomitant]
     Active Substance: OXYCODONE
  44. ADVAIR HFA [Concomitant]
     Active Substance: FLUTICASONE PROPIONATE\SALMETEROL XINAFOATE
  45. FLUTICASONE [Concomitant]
     Active Substance: FLUTICASONE
  46. CITALOPRAM [Concomitant]
     Active Substance: CITALOPRAM HYDROBROMIDE
  47. CRESTOR [Concomitant]
     Active Substance: ROSUVASTATIN CALCIUM
  48. FUROSEMIDE [Concomitant]
     Active Substance: FUROSEMIDE
  49. LORATADINE [Concomitant]
     Active Substance: LORATADINE
  50. DETROL [Concomitant]
     Active Substance: TOLTERODINE TARTRATE
  51. SINGULAIR [Concomitant]
     Active Substance: MONTELUKAST SODIUM
  52. IBUPROFEN [Concomitant]
     Active Substance: IBUPROFEN
  53. SIMVASTATIN [Concomitant]
     Active Substance: SIMVASTATIN
  54. CLONIDINE [Concomitant]
     Active Substance: CLONIDINE

REACTIONS (12)
  - Chronic kidney disease [Not Recovered/Not Resolved]
  - Acute kidney injury [Unknown]
  - Renal failure [Unknown]
  - Ankle fracture [Unknown]
  - Emotional distress [Not Recovered/Not Resolved]
  - Anhedonia [Not Recovered/Not Resolved]
  - Mobility decreased [Not Recovered/Not Resolved]
  - Gait disturbance [Not Recovered/Not Resolved]
  - Bone density decreased [Unknown]
  - Renal impairment [Unknown]
  - Anxiety [Not Recovered/Not Resolved]
  - Pain [Not Recovered/Not Resolved]

NARRATIVE: CASE EVENT DATE: 20190301
